FAERS Safety Report 19462897 (Version 1)
Quarter: 2021Q2

REPORT INFORMATION
  Report Type: Spontaneous
  Country: IT (occurrence: IT)
  Receive Date: 20210625
  Receipt Date: 20210625
  Transmission Date: 20210717
  Serious: Yes (Death, Other)
  Sender: FDA-Public Use
  Company Number: IT-AMGEN-ITASP2021093505

PATIENT
  Age: 45 Year
  Sex: Male

DRUGS (6)
  1. CINACALCET HCL [Suspect]
     Active Substance: CINACALCET HYDROCHLORIDE
     Indication: HYPERCALCAEMIA
     Dosage: 30 MILLIGRAM, QD
     Route: 065
  2. CINACALCET HCL [Suspect]
     Active Substance: CINACALCET HYDROCHLORIDE
     Dosage: 60 MILLIGRAM, QD
     Route: 065
  3. EVEROLIMUS. [Concomitant]
     Active Substance: EVEROLIMUS
     Indication: DISEASE PROGRESSION
     Dosage: 10 MILLIGRAM, QD
     Dates: start: 2010
  4. EVEROLIMUS. [Concomitant]
     Active Substance: EVEROLIMUS
     Dosage: 5 MILLIGRAM, QD
     Dates: start: 2018
  5. ZOLEDRONATE [Concomitant]
     Active Substance: ZOLEDRONIC ACID
     Dosage: 4 MILLIGRAM, QMO
     Route: 042
     Dates: start: 201810, end: 201910
  6. XGEVA [Suspect]
     Active Substance: DENOSUMAB
     Indication: METASTASES TO BONE
     Dosage: 120 MILLIGRAM, QMO
     Route: 065

REACTIONS (5)
  - Death [Fatal]
  - Osteonecrosis of jaw [Unknown]
  - Pancreatic carcinoma metastatic [Unknown]
  - Drug ineffective [Unknown]
  - Blood calcium increased [Unknown]

NARRATIVE: CASE EVENT DATE: 2019
